FAERS Safety Report 4870692-1 (Version None)
Quarter: 2006Q1

REPORT INFORMATION
  Report Type: 
  Country: None (occurrence: None)
  Receive Date: 20060103
  Receipt Date: 20050909
  Transmission Date: 20060701
  Serious: Yes (Death, Life-Threatening)
  Sender: FDA-Public Use
  Company Number: JP-JPN-A20052158

PATIENT
  Age: 85 Year
  Sex: Female
  Weight: 40 kg

DRUGS (16)
  1. VALTREX [Suspect]
     Indication: HERPES ZOSTER
     Dosage: 500MG TWICE PER DAY
     Route: 048
     Dates: start: 20050901, end: 20050904
  2. GASTER [Concomitant]
     Indication: GASTRIC ULCER
     Dosage: 20MG PER DAY
     Route: 042
     Dates: start: 20050907, end: 20050913
  3. AMINOFLUID [Concomitant]
     Indication: NUTRITIONAL SUPPORT
     Dosage: 500ML PER DAY
     Route: 042
     Dates: start: 20050827, end: 20050905
  4. PHYSIOSOL [Concomitant]
     Indication: NUTRITIONAL SUPPORT
     Dosage: 1000ML PER DAY
     Route: 042
     Dates: start: 20050827, end: 20050905
  5. NEOLAMIN [Concomitant]
     Indication: NUTRITIONAL SUPPORT
     Dosage: 10ML PER DAY
     Route: 042
     Dates: start: 20050827, end: 20050905
  6. FULCALIQ [Concomitant]
     Indication: NUTRITIONAL SUPPORT
     Dosage: 1103ML PER DAY
     Route: 042
     Dates: start: 20050906, end: 20050907
  7. GLUCOSE [Concomitant]
     Indication: NUTRITIONAL SUPPORT
     Dosage: 1000ML PER DAY
     Route: 042
     Dates: start: 20050907, end: 20050913
  8. DALACIN [Concomitant]
     Indication: PNEUMONIA
     Dosage: 1200MG PER DAY
     Route: 042
     Dates: start: 20050907, end: 20050913
  9. MEROPEN [Concomitant]
     Indication: PNEUMONIA
     Dosage: .5G PER DAY
     Route: 042
     Dates: start: 20050907, end: 20050913
  10. FOY [Concomitant]
     Indication: DISSEMINATED INTRAVASCULAR COAGULATION
     Dosage: 1000MG PER DAY
     Route: 042
     Dates: start: 20050908, end: 20050913
  11. HANP [Concomitant]
     Indication: CARDIAC FAILURE
     Dosage: 5000MCG PER DAY
     Route: 042
     Dates: start: 20050909, end: 20050913
  12. LASIX [Concomitant]
     Indication: CARDIAC FAILURE
     Dosage: 200MG PER DAY
     Route: 042
     Dates: start: 20050908, end: 20050913
  13. PREDONINE [Concomitant]
     Indication: CHEMOTHERAPY
     Dates: start: 20050603, end: 20050603
  14. THERARUBICIN [Concomitant]
     Indication: CHEMOTHERAPY
     Dates: start: 20050603, end: 20050603
  15. ENDOXAN [Concomitant]
     Indication: CHEMOTHERAPY
     Dates: start: 20050603, end: 20050603
  16. ONCOVIN [Concomitant]
     Indication: CHEMOTHERAPY
     Route: 042
     Dates: start: 20050603, end: 20050603

REACTIONS (13)
  - ARRHYTHMIA [None]
  - ATRIAL FIBRILLATION [None]
  - CARDIAC FAILURE CONGESTIVE [None]
  - DISSEMINATED INTRAVASCULAR COAGULATION [None]
  - HEPATITIS FULMINANT [None]
  - HYPOXIA [None]
  - INFECTION [None]
  - MALAISE [None]
  - METABOLIC ACIDOSIS [None]
  - MULTI-ORGAN FAILURE [None]
  - PLEURAL EFFUSION [None]
  - PNEUMONIA [None]
  - SEPSIS [None]
